FAERS Safety Report 12779490 (Version 1)
Quarter: 2016Q3

REPORT INFORMATION
  Report Type: Spontaneous
  Country: US (occurrence: US)
  Receive Date: 20160923
  Receipt Date: 20160923
  Transmission Date: 20161109
  Serious: No
  Sender: FDA-Public Use
  Company Number: None

PATIENT
  Age: 50 Year
  Sex: Female
  Weight: 85.5 kg

DRUGS (7)
  1. CLEOCIN [Suspect]
     Active Substance: CLINDAMYCIN PHOSPHATE
     Indication: TOOTH INFECTION
     Route: 048
  2. IMODIUM [Concomitant]
     Active Substance: LOPERAMIDE HYDROCHLORIDE
  3. DIABETES METER [Concomitant]
  4. EXCEDRIN THE GENERIC BRAND [Concomitant]
  5. ERYTHROMYCIN. [Concomitant]
     Active Substance: ERYTHROMYCIN
  6. MULTI VITAMIN FOR WOMEN [Concomitant]
  7. MOTRIN [Concomitant]
     Active Substance: IBUPROFEN

REACTIONS (7)
  - Vulvovaginal erythema [None]
  - Hyperhidrosis [None]
  - Pyrexia [None]
  - Chills [None]
  - Feeling hot [None]
  - Fatigue [None]
  - Oral mucosal discolouration [None]

NARRATIVE: CASE EVENT DATE: 20160921
